FAERS Safety Report 7443101-6 (Version None)
Quarter: 2011Q2

REPORT INFORMATION
  Report Type: 
  Country: None (occurrence: None)
  Receive Date: 20110428
  Receipt Date: 20110418
  Transmission Date: 20111010
  Serious: Yes (Life-Threatening)
  Sender: FDA-Public Use
  Company Number: FR-GENENTECH-315631

PATIENT
  Sex: Female
  Weight: 49 kg

DRUGS (11)
  1. NEORAL [Suspect]
     Indication: IMMUNOSUPPRESSANT DRUG THERAPY
     Dosage: 100 MG, BID
     Route: 048
     Dates: start: 20110112, end: 20110331
  2. BACTRIM [Concomitant]
     Indication: PRODUCT USED FOR UNKNOWN INDICATION
  3. MABTHERA [Suspect]
     Indication: ACUTE MYELOID LEUKAEMIA
     Dosage: 375 MG/M2, UNK
     Route: 042
     Dates: start: 20110224
  4. NEXIUM [Concomitant]
     Indication: PRODUCT USED FOR UNKNOWN INDICATION
  5. DELURSAN [Concomitant]
     Indication: PRODUCT USED FOR UNKNOWN INDICATION
  6. CELLCEPT [Concomitant]
     Indication: IMMUNOSUPPRESSANT DRUG THERAPY
     Dosage: 500 MG, BID
     Route: 048
     Dates: start: 20110114, end: 20110310
  7. PHENOXYMETHYL PENICILLIN [Concomitant]
     Indication: PROPHYLAXIS
     Dosage: 1 IU, BID
     Route: 048
     Dates: start: 20110113
  8. ROVALCYTE [Concomitant]
     Indication: CYTOMEGALOVIRUS INFECTION
     Dosage: 900 MG, BID
     Route: 048
     Dates: start: 20110221, end: 20110331
  9. TRIFLUCAN [Concomitant]
     Indication: PRODUCT USED FOR UNKNOWN INDICATION
  10. CARBAMAZEPINE [Concomitant]
     Indication: PRODUCT USED FOR UNKNOWN INDICATION
  11. LAROXYL [Concomitant]
     Indication: PRODUCT USED FOR UNKNOWN INDICATION

REACTIONS (2)
  - LEFT VENTRICULAR FAILURE [None]
  - PLEURAL EFFUSION [None]
